FAERS Safety Report 8291394-8 (Version None)
Quarter: 2012Q2

REPORT INFORMATION
  Report Type: 
  Country: None (occurrence: None)
  Receive Date: 20120417
  Receipt Date: 20120221
  Transmission Date: 20120825
  Serious: Yes (Other)
  Sender: FDA-Public Use
  Company Number: JP-GLAXOSMITHKLINE-B0783764A

PATIENT
  Sex: Female

DRUGS (6)
  1. PAXIL [Suspect]
     Indication: DEPRESSION
     Dosage: 20MG PER DAY
     Route: 048
     Dates: start: 20110830
  2. LAMICTAL [Suspect]
     Indication: BIPOLAR DISORDER
     Dosage: 25MG ALTERNATE DAYS
     Route: 048
     Dates: start: 20120208, end: 20120218
  3. LEXAPRO [Suspect]
     Indication: DEPRESSION
     Dosage: 10MG PER DAY
     Route: 048
     Dates: start: 20111228, end: 20120221
  4. RIZE [Suspect]
     Indication: ANXIETY
     Dosage: 15MG PER DAY
     Route: 048
     Dates: start: 20110830
  5. GASMOTIN [Suspect]
     Indication: PROPHYLAXIS
     Dosage: 10MG PER DAY
     Route: 048
     Dates: start: 20110830
  6. DEPAKENE [Suspect]
     Indication: DEPRESSION
     Dosage: 600MG PER DAY
     Route: 048
     Dates: start: 20120125, end: 20120208

REACTIONS (12)
  - ERYTHEMA MULTIFORME [None]
  - TOXIC SKIN ERUPTION [None]
  - PYREXIA [None]
  - CHILLS [None]
  - ERYTHEMA [None]
  - SWELLING FACE [None]
  - DRUG ERUPTION [None]
  - RASH GENERALISED [None]
  - RASH [None]
  - MALAISE [None]
  - MYALGIA [None]
  - GENERALISED ERYTHEMA [None]
